FAERS Safety Report 4940171-1 (Version None)
Quarter: 2006Q1

REPORT INFORMATION
  Report Type: 
  Country: None (occurrence: None)
  Receive Date: 20060310
  Receipt Date: 20060222
  Transmission Date: 20060701
  Serious: No
  Sender: FDA-Public Use
  Company Number: PHBS2006JP03089

PATIENT
  Age: 3 Year
  Sex: Male

DRUGS (1)
  1. ZADITEN [Suspect]
     Route: 048
     Dates: start: 20051101, end: 20060201

REACTIONS (1)
  - CONVULSION [None]
